FAERS Safety Report 5211659-3 (Version None)
Quarter: 2007Q1

REPORT INFORMATION
  Report Type: 
  Country: None (occurrence: None)
  Receive Date: 20070118
  Receipt Date: 20070109
  Transmission Date: 20070707
  Serious: Yes (Hospitalization)
  Sender: FDA-Public Use
  Company Number: 2007CG00067

PATIENT
  Age: 53 Year
  Sex: Female
  Weight: 75 kg

DRUGS (5)
  1. CRESTOR [Suspect]
     Route: 048
  2. AVLOCARDYL [Suspect]
     Route: 048
  3. ALDACTAZINE [Suspect]
     Route: 048
  4. AMLOR [Suspect]
     Route: 048
  5. VALSARTAN AND HYDROCHLOROTHIAZIDE [Suspect]
     Route: 048

REACTIONS (1)
  - PULMONARY EMBOLISM [None]
